FAERS Safety Report 19659999 (Version 3)
Quarter: 2021Q3

REPORT INFORMATION
  Report Type: Other
  Country: US (occurrence: US)
  Receive Date: 20210805
  Receipt Date: 20210823
  Transmission Date: 20211014
  Serious: Yes (Other)
  Sender: FDA-Public Use
  Company Number: US-ROCHE-2883572

PATIENT
  Sex: Female
  Weight: 96.8 kg

DRUGS (25)
  1. ALBUTEROL. [Concomitant]
     Active Substance: ALBUTEROL
     Indication: DYSPNOEA
     Dosage: 2.5 MG/3 ML
     Route: 045
  2. CETRIZINE [Concomitant]
     Active Substance: CETIRIZINE HYDROCHLORIDE
     Route: 048
  3. XOLAIR [Suspect]
     Active Substance: OMALIZUMAB
     Indication: ASTHMA
     Dosage: LAST INJECTION ON 14/APR/2021.
     Route: 058
  4. XOLAIR [Suspect]
     Active Substance: OMALIZUMAB
  5. MONTELUKAST [Concomitant]
     Active Substance: MONTELUKAST SODIUM
     Route: 048
  6. PREDNISONE. [Concomitant]
     Active Substance: PREDNISONE
     Route: 048
  7. ALBUTEROL. [Concomitant]
     Active Substance: ALBUTEROL
     Indication: WHEEZING
  8. BENZONATATE. [Concomitant]
     Active Substance: BENZONATATE
     Route: 048
  9. CHLORTHALIDONE. [Concomitant]
     Active Substance: CHLORTHALIDONE
     Route: 048
  10. HYDROXIZINE HCL [Concomitant]
     Route: 048
  11. LOSARTAN. [Concomitant]
     Active Substance: LOSARTAN
     Route: 048
  12. AZATHIOPRINE. [Concomitant]
     Active Substance: AZATHIOPRINE
     Route: 048
  13. GUAIFENESIN. [Concomitant]
     Active Substance: GUAIFENESIN
     Route: 048
  14. AMLODIPINE [Concomitant]
     Active Substance: AMLODIPINE BESYLATE
     Route: 048
  15. CEFUROXIME. [Concomitant]
     Active Substance: CEFUROXIME
     Route: 048
  16. HYDROCORTISONE. [Concomitant]
     Active Substance: HYDROCORTISONE
     Route: 061
  17. OMEPRAZOLE. [Concomitant]
     Active Substance: OMEPRAZOLE
     Route: 048
  18. OXYGEN. [Concomitant]
     Active Substance: OXYGEN
  19. HYDROCHLOROTHIAZIDE. [Concomitant]
     Active Substance: HYDROCHLOROTHIAZIDE
     Route: 048
  20. XOLAIR [Suspect]
     Active Substance: OMALIZUMAB
  21. ALBUTEROL HFA [Concomitant]
     Active Substance: ALBUTEROL SULFATE
     Dosage: 2 PUFFS, 90 MCG/ACTUATION INHALER
  22. CHOLECALCIFEROL [Concomitant]
     Active Substance: CHOLECALCIFEROL
     Route: 048
  23. DICLOFENAC SODIUM. [Concomitant]
     Active Substance: DICLOFENAC SODIUM
  24. EPINEPHRINE. [Concomitant]
     Active Substance: EPINEPHRINE
     Dosage: 0.3 MG/0.3 ML
     Route: 030
  25. GABAPENTIN. [Concomitant]
     Active Substance: GABAPENTIN
     Route: 048

REACTIONS (2)
  - Pneumonia [Unknown]
  - Illness [Unknown]
